FAERS Safety Report 5601470-3 (Version None)
Quarter: 2008Q1

REPORT INFORMATION
  Report Type: 
  Country: None (occurrence: None)
  Receive Date: 20080118
  Receipt Date: 20080104
  Transmission Date: 20080703
  Serious: Yes (Hospitalization)
  Sender: FDA-Public Use
  Company Number: DSU-2008-00017

PATIENT
  Age: 72 Year
  Sex: Female
  Weight: 73 kg

DRUGS (3)
  1. CS-8663 (TABLET) [Suspect]
     Indication: HYPERTENSION
     Dosage: 40 MG/100MG (QD), PER ORAL
     Route: 048
     Dates: start: 20071105
  2. ZOCOR [Concomitant]
  3. METFORMIN HCL [Concomitant]

REACTIONS (1)
  - TRANSIENT ISCHAEMIC ATTACK [None]
